FAERS Safety Report 18841447 (Version 3)
Quarter: 2021Q1

REPORT INFORMATION
  Report Type: Spontaneous
  Country: US (occurrence: US)
  Receive Date: 20210203
  Receipt Date: 20210226
  Transmission Date: 20210419
  Serious: Yes (Other)
  Sender: FDA-Public Use
  Company Number: US-DECIPHERA PHARMACEUTICALS LLC-2020-US-000786

PATIENT
  Age: 65 Year
  Sex: Female

DRUGS (2)
  1. QINLOCK [Suspect]
     Active Substance: RIPRETINIB
     Indication: GASTROINTESTINAL STROMAL TUMOUR
     Dosage: 150 MILLIGRAM QD
     Route: 048
     Dates: start: 20200602
  2. QINLOCK [Suspect]
     Active Substance: RIPRETINIB
     Dosage: 100 MILLIGRAM QD

REACTIONS (7)
  - Dyspnoea [Unknown]
  - Gastroenteritis viral [Recovered/Resolved]
  - Oedema peripheral [Unknown]
  - Abdominal distension [Unknown]
  - Renal impairment [Unknown]
  - Illness [Unknown]
  - Swelling [Unknown]

NARRATIVE: CASE EVENT DATE: 20210118
